FAERS Safety Report 11306559 (Version 4)
Quarter: 2016Q2

REPORT INFORMATION
  Report Type: Report from Study
  Country: CN (occurrence: CN)
  Receive Date: 20150723
  Receipt Date: 20160503
  Transmission Date: 20160815
  Serious: Yes (Hospitalization)
  Sender: FDA-Public Use
  Company Number: CN-ASTRAZENECA-2015SE71423

PATIENT
  Age: 18108 Day
  Sex: Female

DRUGS (16)
  1. OLAPARIB [Suspect]
     Active Substance: OLAPARIB
     Indication: GASTRIC CANCER
     Route: 048
     Dates: start: 20150122, end: 20150128
  2. OLAPARIB [Suspect]
     Active Substance: OLAPARIB
     Indication: GASTRIC CANCER
     Route: 048
     Dates: start: 20150611, end: 20150624
  3. PACLITAXEL. [Suspect]
     Active Substance: PACLITAXEL
     Indication: GASTRIC CANCER
     Dosage: 80 MG/M2 ON DAYS 1, 8 AND 15 OF A 28 DAY CYCLE
     Route: 042
     Dates: start: 20150618, end: 20150618
  4. PACLITAXEL. [Suspect]
     Active Substance: PACLITAXEL
     Indication: GASTRIC CANCER
     Dosage: 80 MG/M2 ON DAYS 1, 8 AND 15 OF A 28 DAY CYCLE
     Route: 042
     Dates: start: 20150306, end: 20150306
  5. PACLITAXEL. [Suspect]
     Active Substance: PACLITAXEL
     Indication: GASTRIC CANCER
     Dosage: 80 MG/M2 ON DAYS 1, 8 AND 15 OF A 28 DAY CYCLE
     Route: 042
     Dates: start: 20150515, end: 20150515
  6. OLAPARIB [Suspect]
     Active Substance: OLAPARIB
     Indication: GASTRIC CANCER
     Route: 048
     Dates: start: 20150130, end: 20150312
  7. OLAPARIB [Suspect]
     Active Substance: OLAPARIB
     Indication: GASTRIC CANCER
     Route: 048
     Dates: start: 20150515, end: 20150528
  8. PACLITAXEL. [Suspect]
     Active Substance: PACLITAXEL
     Indication: GASTRIC CANCER
     Dosage: 80 MG/M2 ON DAYS 1, 8 AND 15 OF A 28 DAY CYCLE
     Route: 042
     Dates: start: 20150227, end: 20150227
  9. PACLITAXEL. [Suspect]
     Active Substance: PACLITAXEL
     Indication: GASTRIC CANCER
     Dosage: 80 MG/M2 ON DAYS 1, 8 AND 15 OF A 28 DAY CYCLE
     Route: 042
     Dates: start: 20150320, end: 20150320
  10. PACLITAXEL. [Suspect]
     Active Substance: PACLITAXEL
     Indication: GASTRIC CANCER
     Dosage: 80 MG/M2 ON DAYS 1, 8 AND 15 OF A 28 DAY CYCLE
     Route: 042
     Dates: start: 20150522, end: 20150522
  11. OLAPARIB [Suspect]
     Active Substance: OLAPARIB
     Indication: GASTRIC CANCER
     Route: 048
     Dates: start: 20150315, end: 20150430
  12. PACLITAXEL. [Suspect]
     Active Substance: PACLITAXEL
     Indication: GASTRIC CANCER
     Dosage: 80 MG/M2 ON DAYS 1, 8 AND 15 OF A 28 DAY CYCLE
     Route: 042
     Dates: start: 20150424, end: 20150424
  13. PACLITAXEL. [Suspect]
     Active Substance: PACLITAXEL
     Indication: GASTRIC CANCER
     Dosage: 80 MG/M2 ON DAYS 1, 8 AND 15 OF A 28 DAY CYCLE
     Route: 042
     Dates: start: 20150327, end: 20150327
  14. PACLITAXEL. [Suspect]
     Active Substance: PACLITAXEL
     Indication: GASTRIC CANCER
     Dosage: 80 MG/M2 ON DAYS 1, 8 AND 15 OF A 28 DAY CYCLE
     Route: 042
     Dates: start: 20150122, end: 20150122
  15. PACLITAXEL. [Suspect]
     Active Substance: PACLITAXEL
     Indication: GASTRIC CANCER
     Dosage: 80 MG/M2 ON DAYS 1, 8 AND 15 OF A 28 DAY CYCLE
     Route: 042
     Dates: start: 20150611, end: 20150611
  16. PACLITAXEL. [Suspect]
     Active Substance: PACLITAXEL
     Indication: GASTRIC CANCER
     Dosage: 80 MG/M2 ON DAYS 1, 8 AND 15 OF A 28 DAY CYCLE
     Route: 042
     Dates: start: 20150417, end: 20150417

REACTIONS (1)
  - Abdominal infection [Recovered/Resolved]

NARRATIVE: CASE EVENT DATE: 20150707
